FAERS Safety Report 6984107-0 (Version None)
Quarter: 2010Q3

REPORT INFORMATION
  Report Type: 
  Country: None (occurrence: None)
  Receive Date: 20100915
  Receipt Date: 20090519
  Transmission Date: 20110219
  Serious: No
  Sender: FDA-Public Use
  Company Number: US-WYE-H09412409

PATIENT
  Age: 37 Year
  Sex: Female
  Weight: 65.83 kg

DRUGS (6)
  1. ADVIL LIQUI-GELS [Suspect]
     Indication: PAIN
     Route: 048
     Dates: start: 20090515
  2. MULTI-VITAMINS [Concomitant]
  3. VITAMIN B-12 [Concomitant]
  4. VITAMIN B COMPLEX CAP [Concomitant]
  5. MAGNESIUM [Concomitant]
  6. POTASSIUM [Concomitant]

REACTIONS (2)
  - COELIAC DISEASE [None]
  - CONDITION AGGRAVATED [None]
